FAERS Safety Report 9984549 (Version 8)
Quarter: 2016Q2

REPORT INFORMATION
  Report Type: Report from Study
  Country: US (occurrence: US)
  Receive Date: 20140307
  Receipt Date: 20160606
  Transmission Date: 20160815
  Serious: Yes (Other)
  Sender: FDA-Public Use
  Company Number: US-BAYER-2014-032679

PATIENT
  Age: 54 Year
  Sex: Male
  Weight: 85.71 kg

DRUGS (11)
  1. ALDACTONE [Concomitant]
     Active Substance: SPIRONOLACTONE
     Indication: LIVER INJURY
     Dosage: 50 MG, BID
     Route: 048
  2. NEXAVAR [Suspect]
     Active Substance: SORAFENIB
     Indication: HEPATIC CANCER
     Dosage: 400 MG, BID
     Route: 048
     Dates: start: 20140219, end: 20140224
  3. PENTAZOCINE [Concomitant]
     Active Substance: PENTAZOCINE
  4. LASIX [Concomitant]
     Active Substance: FUROSEMIDE
     Indication: SWELLING
     Dosage: 40 MG, BID
     Route: 048
  5. CEPHULAC [Concomitant]
     Active Substance: LACTULOSE
     Indication: HEPATOTOXICITY
     Dosage: 30 ML, TID
     Route: 048
  6. LISINOPRIL. [Concomitant]
     Active Substance: LISINOPRIL
  7. INDERAL [Concomitant]
     Active Substance: PROPRANOLOL HYDROCHLORIDE
  8. NEXIUM [Concomitant]
     Active Substance: ESOMEPRAZOLE MAGNESIUM
     Indication: DYSPEPSIA
     Dosage: 40 MG, OM (EVERY MORNING BEFORE BREAKFAST)
     Route: 048
  9. VIAGRA [Concomitant]
     Active Substance: SILDENAFIL CITRATE
     Indication: ERECTILE DYSFUNCTION
     Dosage: 50 MG (1 TABLET) 1 HOUR PRIOR TO INTERCOURSE AND CAN REPEAT IN 1 HOUR
     Route: 048
  10. NEXAVAR [Suspect]
     Active Substance: SORAFENIB
     Indication: HEPATIC CANCER
     Dosage: 400 MG, BID
     Route: 048
     Dates: start: 20140219, end: 20140219
  11. NEXAVAR [Suspect]
     Active Substance: SORAFENIB
     Indication: HEPATIC CANCER
     Dosage: UNK
     Route: 048
     Dates: start: 20141008, end: 20141203

REACTIONS (7)
  - Fatigue [None]
  - Haematuria [Recovered/Resolved]
  - Abdominal pain [Recovered/Resolved]
  - Haematuria [None]
  - Treatment noncompliance [None]
  - Hepatic cancer [None]
  - Chest pain [Recovered/Resolved]

NARRATIVE: CASE EVENT DATE: 20140224
